FAERS Safety Report 15397928 (Version 3)
Quarter: 2019Q3

REPORT INFORMATION
  Report Type: Report from Study
  Country: IR (occurrence: IR)
  Receive Date: 20180918
  Receipt Date: 20190904
  Transmission Date: 20191004
  Serious: Yes (Death)
  Sender: FDA-Public Use
  Company Number: IR-ELI_LILLY_AND_COMPANY-IR201809006888

PATIENT
  Age: 68 Year
  Sex: Male

DRUGS (6)
  1. CETUXIMAB. [Suspect]
     Active Substance: CETUXIMAB
     Indication: COLORECTAL CANCER METASTATIC
     Dosage: 600 MG/M2, UNKNOWN
     Route: 065
     Dates: start: 20180601, end: 20180601
  2. FOLINIC ACID [Suspect]
     Active Substance: LEUCOVORIN
     Indication: COLORECTAL CANCER METASTATIC
     Dosage: UNK UNK, UNKNOWN
     Route: 065
     Dates: start: 20180601, end: 20180601
  3. PANITUMUMAB [Suspect]
     Active Substance: PANITUMUMAB
     Indication: COLORECTAL CANCER METASTATIC
     Dosage: UNK, UNKNOWN
     Route: 065
  4. IRINOTECAN [Suspect]
     Active Substance: IRINOTECAN
     Indication: COLORECTAL CANCER METASTATIC
     Dosage: 250 MG/M2, UNKNOWN
     Route: 065
     Dates: start: 20180601, end: 20180601
  5. BEVACIZUMAB. [Suspect]
     Active Substance: BEVACIZUMAB
     Indication: COLORECTAL CANCER METASTATIC
     Dosage: UNK, UNKNOWN
     Route: 065
  6. 5 FU [Suspect]
     Active Substance: FLUOROURACIL
     Indication: COLORECTAL CANCER METASTATIC
     Dosage: 1750 MG/M2, UNKNOWN
     Route: 065
     Dates: start: 20180601, end: 20180601

REACTIONS (3)
  - Malignant neoplasm progression [Fatal]
  - Pulmonary embolism [Fatal]
  - Off label use [Unknown]

NARRATIVE: CASE EVENT DATE: 20180830
